FAERS Safety Report 23056803 (Version 2)
Quarter: 2023Q4

REPORT INFORMATION
  Report Type: Spontaneous
  Country: BR (occurrence: BR)
  Receive Date: 20231012
  Receipt Date: 20231122
  Transmission Date: 20240110
  Serious: No
  Sender: FDA-Public Use
  Company Number: BR-TOLMAR, INC.-23BR043575

PATIENT

DRUGS (2)
  1. ELIGARD [Suspect]
     Active Substance: LEUPROLIDE ACETATE
     Indication: Product used for unknown indication
     Dosage: 7.5 MILLIGRAM, Q 1 MONTH
  2. DEVICE [Suspect]
     Active Substance: DEVICE
     Indication: Product used for unknown indication
     Dosage: UNK

REACTIONS (3)
  - Wrong technique in product usage process [Unknown]
  - Intercepted product preparation error [Unknown]
  - Product packaging quantity issue [Unknown]
